FAERS Safety Report 21112839 (Version 1)
Quarter: 2022Q3

REPORT INFORMATION
  Report Type: Spontaneous
  Country: US (occurrence: US)
  Receive Date: 20220721
  Receipt Date: 20220721
  Transmission Date: 20221027
  Serious: Yes (Other)
  Sender: FDA-Public Use
  Company Number: US-PFIZER INC-202200986619

PATIENT
  Age: 65 Year
  Sex: Female

DRUGS (1)
  1. PAXLOVID [Suspect]
     Active Substance: NIRMATRELVIR\RITONAVIR
     Indication: COVID-19 treatment
     Dosage: UNK
     Dates: start: 20220713, end: 20220716

REACTIONS (5)
  - Dehydration [Recovering/Resolving]
  - Dizziness [Recovering/Resolving]
  - Vomiting [Recovering/Resolving]
  - Loose tooth [Recovering/Resolving]
  - Hyperaesthesia teeth [Recovering/Resolving]

NARRATIVE: CASE EVENT DATE: 20220713
